FAERS Safety Report 8845384 (Version 1)
Quarter: 2012Q4

REPORT INFORMATION
  Report Type: 
  Country: US (occurrence: US)
  Receive Date: 20121017
  Receipt Date: 20121017
  Transmission Date: 20130627
  Serious: Yes (Hospitalization, Other)
  Sender: FDA-Public Use
  Company Number: US-009507513-1210USA005588

PATIENT
  Sex: Male

DRUGS (3)
  1. PEGINTRON [Suspect]
     Indication: HEPATITIS C
     Dosage: PEGINTRON-VIAL
     Dates: start: 20111109, end: 20120627
  2. PEGINTRON [Suspect]
     Dosage: PEGINTRON-REDIPEN
     Dates: start: 20120627, end: 201207
  3. REBETOL [Suspect]
     Indication: HEPATITIS C
     Dosage: UNK
     Dates: start: 20111109, end: 201207

REACTIONS (4)
  - Flatulence [Unknown]
  - Chest pain [Unknown]
  - Red blood cell count decreased [Unknown]
  - Hypoaesthesia [Unknown]
